FAERS Safety Report 5806466-4 (Version None)
Quarter: 2008Q3

REPORT INFORMATION
  Report Type: 
  Country: None (occurrence: None)
  Receive Date: 20080710
  Receipt Date: 20070904
  Transmission Date: 20090109
  Serious: Yes (Other)
  Sender: FDA-Public Use
  Company Number: US-BAYER-US-2007-023669

PATIENT
  Age: 69 Year
  Sex: Male
  Weight: 63 kg

DRUGS (11)
  1. CAMPATH [Suspect]
     Indication: CHRONIC LYMPHOCYTIC LEUKAEMIA
     Route: 058
     Dates: start: 20070320, end: 20070320
  2. CAMPATH [Suspect]
     Route: 058
     Dates: start: 20070322, end: 20070322
  3. CAMPATH [Suspect]
     Route: 058
     Dates: start: 20070326, end: 20070326
  4. CAMPATH [Suspect]
     Dates: start: 20070327, end: 20070522
  5. SEPTRA DS [Concomitant]
     Indication: INFECTION PROPHYLAXIS
     Dates: start: 20070320
  6. XANAX [Concomitant]
  7. CLARITIN [Concomitant]
     Indication: PREMEDICATION
  8. NEXIUM [Concomitant]
  9. VALGANCICLOVIR HCL [Concomitant]
     Indication: INFECTION PROPHYLAXIS
     Dates: start: 20070320, end: 20070504
  10. GANCICLOVIR [Concomitant]
     Dates: start: 20070504
  11. TYLENOL [Concomitant]
     Indication: PREMEDICATION

REACTIONS (2)
  - CYTOMEGALOVIRUS TEST POSITIVE [None]
  - PANCYTOPENIA [None]
